FAERS Safety Report 15404817 (Version 4)
Quarter: 2019Q1

REPORT INFORMATION
  Report Type: Report from Study
  Country: None (occurrence: PE)
  Receive Date: 20180919
  Receipt Date: 20190106
  Transmission Date: 20190417
  Serious: Yes (Hospitalization)
  Sender: FDA-Public Use
  Company Number: PE-ABBVIE-18K-127-2490042-00

PATIENT
  Age: 34 Year
  Sex: Male
  Weight: 80 kg

DRUGS (5)
  1. FOLIC ACID. [Concomitant]
     Active Substance: FOLIC ACID
     Indication: PRODUCT USED FOR UNKNOWN INDICATION
  2. METHOTREXATE. [Concomitant]
     Active Substance: METHOTREXATE
     Indication: PRODUCT USED FOR UNKNOWN INDICATION
  3. PREDNISONE. [Concomitant]
     Active Substance: PREDNISONE
     Indication: PRODUCT USED FOR UNKNOWN INDICATION
  4. HUMIRA [Suspect]
     Active Substance: ADALIMUMAB
     Route: 058
     Dates: start: 2018
  5. HUMIRA [Suspect]
     Active Substance: ADALIMUMAB
     Indication: ANKYLOSING SPONDYLITIS
     Route: 058
     Dates: start: 20180803, end: 20180817

REACTIONS (9)
  - Oedema peripheral [Recovering/Resolving]
  - Arthralgia [Recovering/Resolving]
  - Malaise [Recovering/Resolving]
  - Gait disturbance [Recovering/Resolving]
  - Immunodeficiency [Unknown]
  - Pyrexia [Recovering/Resolving]
  - Arthritis [Unknown]
  - Localised oedema [Recovering/Resolving]
  - Hepatitis C [Recovering/Resolving]

NARRATIVE: CASE EVENT DATE: 2018
